FAERS Safety Report 7739395-X (Version None)
Quarter: 2011Q3

REPORT INFORMATION
  Report Type: 
  Country: None (occurrence: None)
  Receive Date: 20110909
  Receipt Date: 20110901
  Transmission Date: 20111222
  Serious: Yes (Hospitalization)
  Sender: FDA-Public Use
  Company Number: US-ASTELLAS-2011US002846

PATIENT
  Sex: Female

DRUGS (3)
  1. ERLOTINIB HYDROCHLORIDE [Suspect]
     Dosage: 150 MG, UID/QD
     Route: 048
  2. ERLOTINIB HYDROCHLORIDE [Suspect]
     Indication: LUNG CARCINOMA CELL TYPE UNSPECIFIED STAGE 0
     Dosage: 150 MG, UID/QD - ON HOLD ONE WEEK
     Route: 048
     Dates: start: 20110525, end: 20110817
  3. ERLOTINIB HYDROCHLORIDE [Suspect]
     Dosage: 150 MG, UID/QD
     Route: 048
     Dates: start: 20110824

REACTIONS (13)
  - EYE PRURITUS [None]
  - PRURITUS [None]
  - NASAL DISCOMFORT [None]
  - FLATULENCE [None]
  - ARTHRALGIA [None]
  - EYE PAIN [None]
  - HOSPITALISATION [None]
  - EAR DISCOMFORT [None]
  - MYALGIA [None]
  - ERYTHEMA [None]
  - BONE PAIN [None]
  - DIARRHOEA [None]
  - BLISTER [None]
